FAERS Safety Report 25035017 (Version 1)
Quarter: 2025Q1

REPORT INFORMATION
  Report Type: Spontaneous
  Country: US (occurrence: US)
  Receive Date: 20250304
  Receipt Date: 20250304
  Transmission Date: 20250409
  Serious: Yes (Hospitalization)
  Sender: ROCHE
  Company Number: US-ROCHE-10000214994

PATIENT
  Age: 77 Year
  Sex: Female

DRUGS (8)
  1. TRASTUZUMAB [Suspect]
     Active Substance: TRASTUZUMAB
     Indication: Breast cancer stage IV
     Route: 065
     Dates: start: 2023
  2. CAPECITABINE [Concomitant]
     Active Substance: CAPECITABINE
     Dates: start: 2023
  3. HEPARIN [Concomitant]
     Active Substance: HEPARIN SODIUM
     Indication: Anticoagulant therapy
     Route: 042
  4. ENOXAPARIN [Concomitant]
     Active Substance: ENOXAPARIN
     Indication: Anticoagulant therapy
     Route: 058
  5. WARFARIN [Concomitant]
     Active Substance: WARFARIN
     Indication: Anticoagulant therapy
     Route: 048
  6. ATORVASTATIN [Concomitant]
     Active Substance: ATORVASTATIN
     Indication: Cerebrovascular accident prophylaxis
  7. LOSARTAN [Concomitant]
     Active Substance: LOSARTAN
  8. CARVEDILOL [Concomitant]
     Active Substance: CARVEDILOL
     Indication: Hypertension

REACTIONS (4)
  - Stress cardiomyopathy [Unknown]
  - Cardiac ventricular thrombosis [Recovered/Resolved]
  - Embolic stroke [Unknown]
  - Left ventricular dysfunction [Recovered/Resolved]
